FAERS Safety Report 8979639 (Version 1)
Quarter: 2012Q4

REPORT INFORMATION
  Report Type: 
  Country: US (occurrence: US)
  Receive Date: 20121221
  Receipt Date: 20121221
  Transmission Date: 20130627
  Serious: Yes (Hospitalization)
  Sender: FDA-Public Use
  Company Number: US-BAYER-2012-133438

PATIENT
  Age: 34 Year
  Sex: Female

DRUGS (4)
  1. BEYAZ [Suspect]
  2. YAZ [Suspect]
  3. GIANVI [Suspect]
  4. LOESTRIN FE [Concomitant]

REACTIONS (1)
  - Pulmonary embolism [None]
